FAERS Safety Report 23732192 (Version 1)
Quarter: 2024Q2

REPORT INFORMATION
  Report Type: Other
  Country: US (occurrence: US)
  Receive Date: 20240411
  Receipt Date: 20240411
  Transmission Date: 20240715
  Serious: Yes (Other)
  Sender: FDA-Public Use
  Company Number: US-DEXPHARM-2024-0912

PATIENT
  Age: 4 Year
  Sex: Female

DRUGS (1)
  1. DEXYCU [Suspect]
     Active Substance: DEXAMETHASONE
     Dosage: INTRACAMERAL DEXAMETHASONE 9%

REACTIONS (1)
  - Iris atrophy [Unknown]
